FAERS Safety Report 14018379 (Version 1)
Quarter: 2017Q3

REPORT INFORMATION
  Report Type: Spontaneous
  Country: US (occurrence: US)
  Receive Date: 20170928
  Receipt Date: 20170928
  Transmission Date: 20171128
  Serious: No
  Sender: FDA-Public Use
  Company Number: US-TEVA-762052USA

PATIENT
  Sex: Female

DRUGS (1)
  1. PRAZOSIN. [Suspect]
     Active Substance: PRAZOSIN
     Route: 065
     Dates: start: 20170417

REACTIONS (2)
  - Hot flush [Unknown]
  - Swelling face [Unknown]

NARRATIVE: CASE EVENT DATE: 20170418
